FAERS Safety Report 7743135-8 (Version None)
Quarter: 2011Q3

REPORT INFORMATION
  Report Type: 
  Country: None (occurrence: None)
  Receive Date: 20110912
  Receipt Date: 20110907
  Transmission Date: 20111222
  Serious: Yes (Hospitalization)
  Sender: FDA-Public Use
  Company Number: JP-ROCHE-801498

PATIENT
  Sex: Female
  Weight: 46 kg

DRUGS (4)
  1. ACTEMRA [Suspect]
     Indication: RHEUMATOID ARTHRITIS
     Route: 041
     Dates: start: 20080805, end: 20090310
  2. ACTEMRA [Suspect]
     Route: 041
     Dates: start: 20090414, end: 20090512
  3. ACTEMRA [Suspect]
     Route: 041
     Dates: start: 20090609, end: 20100216
  4. ACTEMRA [Suspect]
     Route: 041
     Dates: start: 20100420

REACTIONS (1)
  - CONTUSION [None]
